FAERS Safety Report 14851843 (Version 1)
Quarter: 2018Q2

REPORT INFORMATION
  Report Type: Spontaneous
  Country: US (occurrence: US)
  Receive Date: 20180507
  Receipt Date: 20180507
  Transmission Date: 20180711
  Serious: Yes (Life-Threatening)
  Sender: FDA-Public Use
  Company Number: US-AMGEN-USASP2018056173

PATIENT
  Age: 69 Year
  Sex: Male
  Weight: 104.31 kg

DRUGS (6)
  1. CARVEDILOL. [Concomitant]
     Active Substance: CARVEDILOL
  2. BUMETANIDE. [Concomitant]
     Active Substance: BUMETANIDE
     Dosage: UNK, AS NECESSARY
  3. REPATHA [Suspect]
     Active Substance: EVOLOCUMAB
     Indication: BLOOD CHOLESTEROL INCREASED
     Dosage: 140 MG, Q2WK
     Route: 065
     Dates: start: 20171010, end: 20171212
  4. LEVOTHYROXINE. [Concomitant]
     Active Substance: LEVOTHYROXINE
  5. ELIQUIS [Concomitant]
     Active Substance: APIXABAN
  6. ASPIRIN. [Concomitant]
     Active Substance: ASPIRIN

REACTIONS (10)
  - Dyspnoea [Recovering/Resolving]
  - Influenza like illness [Recovering/Resolving]
  - Pruritus [Recovering/Resolving]
  - Dysphonia [Not Recovered/Not Resolved]
  - Nasopharyngitis [Recovering/Resolving]
  - Asthenia [Recovering/Resolving]
  - Arrhythmia [Recovering/Resolving]
  - Throat tightness [Not Recovered/Not Resolved]
  - Wheezing [Not Recovered/Not Resolved]
  - Device malfunction [Recovering/Resolving]

NARRATIVE: CASE EVENT DATE: 2017
